FAERS Safety Report 23326607 (Version 1)
Quarter: 2023Q4

REPORT INFORMATION
  Report Type: Spontaneous
  Country: US (occurrence: US)
  Receive Date: 20231221
  Receipt Date: 20231221
  Transmission Date: 20240110
  Serious: Yes (Life-Threatening, Other)
  Sender: FDA-Public Use
  Company Number: US-BAYER-2023A182721

PATIENT
  Age: 60 Year

DRUGS (2)
  1. LOTRIMIN [Suspect]
     Active Substance: CLOTRIMAZOLE
     Dosage: UNK
     Dates: start: 1990, end: 2010
  2. COSMETICS [Suspect]
     Active Substance: COSMETICS

REACTIONS (1)
  - Mesothelioma [None]

NARRATIVE: CASE EVENT DATE: 20230727
